FAERS Safety Report 8926980 (Version 6)
Quarter: 2013Q4

REPORT INFORMATION
  Report Type: Spontaneous
  Country: US (occurrence: US)
  Receive Date: 20121127
  Receipt Date: 20131113
  Transmission Date: 20140711
  Serious: Yes (Hospitalization, Other)
  Sender: FDA-Public Use
  Company Number: US-ROCHE-1112494

PATIENT
  Age: 16 Year
  Sex: Female
  Weight: 68.1 kg

DRUGS (1)
  1. ACCUTANE [Suspect]
     Indication: ACNE
     Route: 065
     Dates: start: 199912, end: 200108

REACTIONS (10)
  - Crohn^s disease [Unknown]
  - Colitis ulcerative [Unknown]
  - Sacroiliitis [Unknown]
  - Suicide attempt [Unknown]
  - Depression [Unknown]
  - Inflammatory bowel disease [Unknown]
  - Suicidal ideation [Unknown]
  - Cheilitis [Unknown]
  - Acne [Unknown]
  - Dry skin [Unknown]
